FAERS Safety Report 26123274 (Version 1)
Quarter: 2025Q4

REPORT INFORMATION
  Report Type: Spontaneous
  Country: US (occurrence: US)
  Receive Date: 20251204
  Receipt Date: 20251204
  Transmission Date: 20260117
  Serious: Yes (Other)
  Sender: HLS THERAPEUTICS
  Company Number: US-HLS-202500426

PATIENT
  Sex: Female

DRUGS (1)
  1. CLOZARIL [Suspect]
     Active Substance: CLOZAPINE
     Indication: Product used for unknown indication
     Dosage: DECREASE BY 25 MG TO 150 MG ON 10-NOV-2025
     Route: 065

REACTIONS (3)
  - Labelled drug-drug interaction issue [Unknown]
  - Renal mass [Unknown]
  - Urinary tract infection [Unknown]
